FAERS Safety Report 7796647-5 (Version None)
Quarter: 2011Q3

REPORT INFORMATION
  Report Type: 
  Country: None (occurrence: None)
  Receive Date: 20110930
  Receipt Date: 20110916
  Transmission Date: 20111222
  Serious: Yes (Hospitalization, Other)
  Sender: FDA-Public Use
  Company Number: JPI-P-013121

PATIENT
  Age: 53 Year
  Sex: Male

DRUGS (23)
  1. MODAFINIL [Concomitant]
  2. AZITHROMYCIN [Suspect]
     Indication: SYSTEMIC LUPUS ERYTHEMATOSUS
     Dates: start: 20101101, end: 20101123
  3. SERTRALINE HYDROCHLORIDE [Concomitant]
  4. XYREM [Suspect]
     Indication: NARCOLEPSY
     Dosage: SEE IMAGE
     Route: 048
     Dates: start: 20090101, end: 20090101
  5. XYREM [Suspect]
     Indication: NARCOLEPSY
     Dosage: SEE IMAGE
     Route: 048
     Dates: end: 20101123
  6. XYREM [Suspect]
     Indication: NARCOLEPSY
     Dosage: SEE IMAGE
     Route: 048
     Dates: start: 20090101
  7. XYREM [Suspect]
     Indication: NARCOLEPSY
     Dosage: SEE IMAGE
     Route: 048
     Dates: start: 20050101, end: 20050101
  8. XYREM [Suspect]
     Indication: NARCOLEPSY
     Dosage: SEE IMAGE
     Route: 048
     Dates: start: 20090101, end: 20090101
  9. XYREM [Suspect]
     Indication: NARCOLEPSY
     Dosage: SEE IMAGE
     Route: 048
     Dates: start: 20050101, end: 20050101
  10. XYREM [Suspect]
     Indication: NARCOLEPSY
     Dosage: SEE IMAGE
     Route: 048
     Dates: start: 20050101, end: 20050101
  11. XYREM [Suspect]
     Indication: NARCOLEPSY
     Dosage: SEE IMAGE
     Route: 048
     Dates: start: 20050101, end: 20050101
  12. XYREM [Suspect]
     Indication: NARCOLEPSY
     Dosage: SEE IMAGE
     Route: 048
     Dates: start: 20090101, end: 20090101
  13. XYREM [Suspect]
     Indication: NARCOLEPSY
     Dosage: SEE IMAGE
     Route: 048
     Dates: start: 20090101, end: 20090101
  14. XYREM [Suspect]
     Indication: NARCOLEPSY
     Dosage: SEE IMAGE
     Route: 048
     Dates: start: 20090101, end: 20090101
  15. XYREM [Suspect]
     Indication: NARCOLEPSY
     Dosage: SEE IMAGE
     Route: 048
     Dates: start: 20050101, end: 20050101
  16. XYREM [Suspect]
     Indication: NARCOLEPSY
     Dosage: SEE IMAGE
     Route: 048
     Dates: start: 20050101, end: 20050101
  17. XYREM [Suspect]
     Indication: NARCOLEPSY
     Dosage: SEE IMAGE
     Route: 048
     Dates: start: 20090601
  18. XYREM [Suspect]
     Indication: NARCOLEPSY
     Dosage: SEE IMAGE
     Route: 048
     Dates: start: 20050101, end: 20050101
  19. XYREM [Suspect]
     Indication: NARCOLEPSY
     Dosage: SEE IMAGE
     Route: 048
     Dates: start: 20090101, end: 20090101
  20. XYREM [Suspect]
     Indication: NARCOLEPSY
     Dosage: SEE IMAGE
     Route: 048
     Dates: end: 20090601
  21. LISINOPRIL [Concomitant]
  22. ALPRAZOLAM [Concomitant]
  23. AZATHIOPRINE [Suspect]
     Indication: SYSTEMIC LUPUS ERYTHEMATOSUS
     Dates: start: 20101101, end: 20101123

REACTIONS (27)
  - RECTAL HAEMORRHAGE [None]
  - FRUSTRATION [None]
  - PARAESTHESIA [None]
  - CRYING [None]
  - SUICIDAL IDEATION [None]
  - WEIGHT DECREASED [None]
  - INSOMNIA [None]
  - ANXIETY [None]
  - CONVULSION [None]
  - ABDOMINAL DISTENSION [None]
  - VISION BLURRED [None]
  - DECREASED INTEREST [None]
  - FOOD CRAVING [None]
  - FEELING JITTERY [None]
  - NAUSEA [None]
  - NIGHTMARE [None]
  - ABDOMINAL TENDERNESS [None]
  - DEPRESSION [None]
  - ANGER [None]
  - AGGRESSION [None]
  - ERUCTATION [None]
  - ABNORMAL DREAMS [None]
  - SYSTEMIC LUPUS ERYTHEMATOSUS [None]
  - ABNORMAL SLEEP-RELATED EVENT [None]
  - BLOOD PRESSURE FLUCTUATION [None]
  - HYPOAESTHESIA [None]
  - MIDDLE INSOMNIA [None]
